FAERS Safety Report 21313082 (Version 1)
Quarter: 2022Q3

REPORT INFORMATION
  Report Type: Spontaneous
  Country: GB (occurrence: GB)
  Receive Date: 20220909
  Receipt Date: 20220909
  Transmission Date: 20221027
  Serious: Yes (Other)
  Sender: FDA-Public Use
  Company Number: None

PATIENT
  Age: 9 Year
  Sex: Male

DRUGS (4)
  1. CLOBAZAM [Suspect]
     Active Substance: CLOBAZAM
     Indication: Myoclonus
     Dosage: 10 MG ON (EVERY NIGHT)
     Route: 048
     Dates: start: 202103
  2. CLOBAZAM [Suspect]
     Active Substance: CLOBAZAM
     Dosage: 5 MG ON (EVERY NIGHT)
     Route: 048
  3. CLOBAZAM [Suspect]
     Active Substance: CLOBAZAM
     Dosage: 2.5MG OM (EVERY MORNING) LAST MONTH
     Route: 048
  4. VALPROATE SODIUM [Concomitant]
     Active Substance: VALPROATE SODIUM
     Indication: Epilepsy
     Dosage: UNK
     Route: 065

REACTIONS (2)
  - Abnormal behaviour [Unknown]
  - Drug ineffective [Unknown]

NARRATIVE: CASE EVENT DATE: 20220816
